FAERS Safety Report 8203426-3 (Version None)
Quarter: 2012Q1

REPORT INFORMATION
  Report Type: 
  Country: None (occurrence: None)
  Receive Date: 20120313
  Receipt Date: 20120302
  Transmission Date: 20120608
  Serious: Yes (Hospitalization, Other)
  Sender: FDA-Public Use
  Company Number: US-BRISTOL-MYERS SQUIBB COMPANY-16210320

PATIENT
  Age: 67 Year
  Sex: Female
  Weight: 48 kg

DRUGS (3)
  1. NEURONTIN [Concomitant]
     Indication: ORAL PAIN
  2. CETUXIMAB [Suspect]
     Indication: TONGUE NEOPLASM MALIGNANT STAGE UNSPECIFIED
     Dosage: RECENT INF:18OCT11 NO OF INF:53 INTERRUPTED:18OCT11 RESTARTED ON 8NOV11
     Route: 042
     Dates: start: 20101019
  3. METHADON HCL TAB [Concomitant]

REACTIONS (2)
  - PNEUMATOSIS INTESTINALIS [None]
  - GLOSSODYNIA [None]
